FAERS Safety Report 7156307-0 (Version None)
Quarter: 2010Q4

REPORT INFORMATION
  Report Type: 
  Country: None (occurrence: None)
  Receive Date: 20101123
  Receipt Date: 20100817
  Transmission Date: 20110411
  Serious: Yes (Other)
  Sender: FDA-Public Use
  Company Number: 015197

PATIENT
  Sex: Female
  Weight: 63.5 kg

DRUGS (5)
  1. CIMZIA [Suspect]
     Indication: CROHN'S DISEASE
     Dosage: 400 MG 1X/4 WEEKS, SUBCUTANEOUS, 400 MG 1X/MONTH SUBCUTANEOUS
     Route: 058
     Dates: end: 20090801
  2. CIMZIA [Suspect]
     Indication: CROHN'S DISEASE
     Dosage: 400 MG 1X/4 WEEKS, SUBCUTANEOUS, 400 MG 1X/MONTH SUBCUTANEOUS
     Route: 058
     Dates: start: 20090901
  3. IMURAN [Concomitant]
  4. OXYCODONE [Concomitant]
  5. ZOLOFT [Concomitant]

REACTIONS (16)
  - ABNORMAL SENSATION IN EYE [None]
  - BODY TEMPERATURE INCREASED [None]
  - CROHN'S DISEASE [None]
  - DEPRESSED MOOD [None]
  - EAR DISORDER [None]
  - EPISTAXIS [None]
  - FACIAL PARESIS [None]
  - FATIGUE [None]
  - HEADACHE [None]
  - LYMPHADENOPATHY [None]
  - MUSCLE SPASMS [None]
  - OCULAR DISCOMFORT [None]
  - PUPILLARY DISORDER [None]
  - STAPHYLOCOCCAL INFECTION [None]
  - TEARFULNESS [None]
  - VISION BLURRED [None]
